FAERS Safety Report 21988210 (Version 2)
Quarter: 2023Q1

REPORT INFORMATION
  Report Type: Spontaneous
  Country: US (occurrence: US)
  Receive Date: 20230214
  Receipt Date: 20230315
  Transmission Date: 20230418
  Serious: No
  Sender: FDA-Public Use
  Company Number: US-BRISTOL-MYERS SQUIBB COMPANY-2023-021159

PATIENT
  Age: 76 Year
  Sex: Female

DRUGS (1)
  1. POMALYST [Suspect]
     Active Substance: POMALIDOMIDE
     Indication: Plasma cell myeloma
     Route: 048
     Dates: start: 20200408

REACTIONS (7)
  - Product distribution issue [Unknown]
  - Inappropriate schedule of product administration [Unknown]
  - Dyspepsia [Not Recovered/Not Resolved]
  - Productive cough [Not Recovered/Not Resolved]
  - Off label use [Unknown]
  - Joint swelling [Unknown]
  - Peripheral swelling [Unknown]
